FAERS Safety Report 8971508 (Version 1)
Quarter: 2012Q4

REPORT INFORMATION
  Report Type: 
  Country: GB (occurrence: GB)
  Receive Date: 20121217
  Receipt Date: 20121217
  Transmission Date: 20130627
  Serious: Yes (Hospitalization)
  Sender: FDA-Public Use
  Company Number: GB-TEVA-375899ISR

PATIENT
  Age: 61 Year
  Sex: Female

DRUGS (4)
  1. PREDNISOLONE [Suspect]
     Indication: PLATELET COUNT DECREASED
     Dates: start: 20121120, end: 20121128
  2. QUETIAPINE [Concomitant]
     Indication: BIPOLAR DISORDER
     Dosage: Dose increased
     Route: 048
     Dates: start: 201108
  3. VALPROATE [Concomitant]
     Indication: BIPOLAR DISORDER
     Route: 048
     Dates: start: 201201
  4. OMEPRAZOLE [Concomitant]
     Route: 048
     Dates: start: 20121120, end: 20121129

REACTIONS (1)
  - Mania [Not Recovered/Not Resolved]
